FAERS Safety Report 7378752-0 (Version None)
Quarter: 2011Q1

REPORT INFORMATION
  Report Type: 
  Country: None (occurrence: None)
  Receive Date: 20110328
  Receipt Date: 20110321
  Transmission Date: 20110831
  Serious: Yes (Hospitalization)
  Sender: FDA-Public Use
  Company Number: GB-TEVA-273136ISR

PATIENT
  Age: 27 Year
  Sex: Female
  Weight: 65 kg

DRUGS (2)
  1. VALPROIC ACID [Suspect]
     Route: 048
     Dates: start: 20110128, end: 20110202
  2. VALPROIC ACID [Suspect]
     Indication: MOOD SWINGS
     Route: 048
     Dates: start: 20110120, end: 20110127

REACTIONS (1)
  - DIABETIC KETOACIDOSIS [None]
